FAERS Safety Report 23447665 (Version 2)
Quarter: 2024Q4

REPORT INFORMATION
  Report Type: Spontaneous
  Country: US (occurrence: US)
  Receive Date: 20240126
  Receipt Date: 20241017
  Transmission Date: 20250115
  Serious: Yes (Hospitalization)
  Sender: NOVO NORDISK
  Company Number: US-NOVOPROD-1166033

PATIENT
  Age: 52 Year
  Sex: Female

DRUGS (3)
  1. WEGOVY [Suspect]
     Active Substance: SEMAGLUTIDE
     Dosage: 0.5 MG, QW
     Route: 058
     Dates: start: 20230612, end: 20230907
  2. WEGOVY [Suspect]
     Active Substance: SEMAGLUTIDE
     Indication: Weight control
     Dosage: 0.25 MG, QW
     Route: 058
     Dates: start: 20230512, end: 20230612
  3. IBUPROFEN [Concomitant]
     Active Substance: IBUPROFEN
     Dosage: UNK
     Dates: start: 20220102

REACTIONS (5)
  - Dehydration [Recovered/Resolved]
  - Acute kidney injury [Unknown]
  - Intestinal obstruction [Not Recovered/Not Resolved]
  - Malaise [Unknown]
  - Eructation [Unknown]

NARRATIVE: CASE EVENT DATE: 20230501
